FAERS Safety Report 5750434-8 (Version None)
Quarter: 2008Q2

REPORT INFORMATION
  Report Type: 
  Country: None (occurrence: None)
  Receive Date: 20080528
  Receipt Date: 20070806
  Transmission Date: 20081010
  Serious: No
  Sender: FDA-Public Use
  Company Number: US-KINGPHARMUSA00001-K200700988

PATIENT

DRUGS (17)
  1. AVINZA [Suspect]
     Indication: PAIN
     Dosage: 30 MG, QD
     Route: 048
     Dates: start: 20061001, end: 20070101
  2. AVINZA [Suspect]
     Dosage: 60 MG, QD
     Route: 048
     Dates: start: 20070101
  3. SYNTHROID [Concomitant]
     Indication: THYROID DISORDER
     Dosage: 175 MG, 5 DAYS/WK
  4. TOPAMAX [Concomitant]
     Indication: ANALGESIA
     Dosage: 25 MG, (7 TABS OF 25MG)
  5. TOPAMAX [Concomitant]
     Indication: MIGRAINE
  6. PROMETRIUM [Concomitant]
     Indication: HORMONE REPLACEMENT THERAPY
  7. ESTROGEL [Concomitant]
     Indication: HORMONE REPLACEMENT THERAPY
  8. PULMICORT [Concomitant]
     Indication: RESPIRATORY DISORDER
  9. ALBUTEROL [Concomitant]
  10. PROGESTERONE [Concomitant]
     Indication: HORMONE REPLACEMENT THERAPY
  11. RELAFEN [Concomitant]
     Indication: PAIN
     Dates: end: 20070805
  12. ZANAFLEX [Concomitant]
     Indication: MUSCLE RELAXANT THERAPY
  13. NORCO [Concomitant]
     Indication: BREAKTHROUGH PAIN
  14. DILAUDID [Concomitant]
     Indication: BREAKTHROUGH PAIN
  15. IMITREX    /01044801/ [Concomitant]
     Indication: MIGRAINE
  16. CHLORZOXAZONE [Concomitant]
     Indication: MUSCLE RELAXANT THERAPY
  17. RETIN-A [Concomitant]

REACTIONS (4)
  - ALOPECIA [None]
  - ANOREXIA [None]
  - THYROID FUNCTION TEST ABNORMAL [None]
  - WEIGHT DECREASED [None]
